FAERS Safety Report 5410830-5 (Version None)
Quarter: 2007Q3

REPORT INFORMATION
  Report Type: 
  Country: None (occurrence: None)
  Receive Date: 20070810
  Receipt Date: 20070803
  Transmission Date: 20080115
  Serious: Yes (Death, Other)
  Sender: FDA-Public Use
  Company Number: PHBS2007CH12957

PATIENT
  Sex: Female

DRUGS (2)
  1. AREDIA [Suspect]
     Indication: BREAST CANCER
     Route: 042
     Dates: start: 20011201
  2. ZOMETA [Suspect]
     Indication: BREAST CANCER
     Route: 042
     Dates: start: 20020101, end: 20050501

REACTIONS (3)
  - BONE DEBRIDEMENT [None]
  - BREAST CANCER [None]
  - OSTEONECROSIS [None]
